FAERS Safety Report 11893465 (Version 4)
Quarter: 2016Q2

REPORT INFORMATION
  Report Type: Spontaneous
  Country: US (occurrence: US)
  Receive Date: 20160106
  Receipt Date: 20160519
  Transmission Date: 20160815
  Serious: Yes (Other)
  Sender: FDA-Public Use
  Company Number: US-TEVA-622628USA

PATIENT
  Age: 40 Year
  Sex: Female

DRUGS (2)
  1. SYNTHROID [Concomitant]
     Active Substance: LEVOTHYROXINE SODIUM
  2. ZECUITY [Suspect]
     Active Substance: SUMATRIPTAN SUCCINATE
     Indication: MIGRAINE
     Dosage: 6.5 MG/4 HR
     Route: 062
     Dates: start: 201512, end: 201512

REACTIONS (11)
  - Device battery issue [Recovered/Resolved]
  - Application site burn [Recovered/Resolved]
  - Application site pain [Recovered/Resolved]
  - Chemical burn of skin [Recovered/Resolved]
  - Application site pruritus [Recovered/Resolved]
  - Application site urticaria [Recovered/Resolved]
  - Application site discolouration [Recovered/Resolved]
  - Device leakage [Recovered/Resolved]
  - Rash [Recovered/Resolved]
  - Application site erythema [Recovered/Resolved]
  - Application site bruise [Recovered/Resolved]

NARRATIVE: CASE EVENT DATE: 201512
